FAERS Safety Report 9683459 (Version 2)
Quarter: 2013Q4

REPORT INFORMATION
  Report Type: Spontaneous
  Country: CA (occurrence: CA)
  Receive Date: 20131112
  Receipt Date: 20131112
  Transmission Date: 20140711
  Serious: Yes (Other)
  Sender: FDA-Public Use
  Company Number: CA-SA-2013-07813

PATIENT
  Sex: Female
  Weight: 106 kg

DRUGS (1)
  1. TUBERSOL (5) [Suspect]
     Indication: TUBERCULIN TEST
     Dosage: START THERAPY DATE TEXT : NOT REPORTED?END THERAPY DATE TEXT : NOT REPORTED
     Route: 058
     Dates: start: 20130306, end: 20130306

REACTIONS (5)
  - Hypoaesthesia eye [Recovered/Resolved]
  - Hypoaesthesia oral [Recovered/Resolved]
  - Paraesthesia [Recovered/Resolved]
  - Paraesthesia oral [Recovered/Resolved]
  - Swelling face [Recovered/Resolved]
